FAERS Safety Report 9392351 (Version 3)
Quarter: 2013Q3

REPORT INFORMATION
  Report Type: Spontaneous
  Country: FR (occurrence: FR)
  Receive Date: 20130710
  Receipt Date: 20130807
  Transmission Date: 20140515
  Serious: Yes (Death, Hospitalization, Other)
  Sender: FDA-Public Use
  Company Number: FR-ALEXION PHARMACEUTICALS INC.-A201301566

PATIENT
  Age: 61 Year
  Sex: Male

DRUGS (1)
  1. SOLIRIS 300MG [Suspect]
     Indication: HAEMOLYTIC URAEMIC SYNDROME
     Dosage: 900 MG, QW
     Route: 042
     Dates: start: 20130613, end: 20130627

REACTIONS (5)
  - Cerebrovascular accident [Fatal]
  - Disseminated intravascular coagulation [Fatal]
  - Ischaemic cardiomyopathy [Unknown]
  - Left ventricular dysfunction [Unknown]
  - Acute respiratory distress syndrome [Unknown]
